FAERS Safety Report 4125351 (Version 2)
Quarter: 2013Q2

REPORT INFORMATION
  Report Type: Spontaneous
  Country: US (occurrence: None)
  Receive Date: 20040401
  Receipt Date: 20120430
  Transmission Date: 20140414
  Serious: Yes (Other)
  Sender: FDA-Public Use
  Company Number: PHEH2002US08261

PATIENT
  Sex: Female

DRUGS (1)
  1. VIVELLE DOT [Suspect]

REACTIONS (3)
  - DEPRESSION [None]
  - CRYING [None]
  - Fatigue [None]
